FAERS Safety Report 20663951 (Version 1)
Quarter: 2022Q2

REPORT INFORMATION
  Report Type: Spontaneous
  Country: CN (occurrence: CN)
  Receive Date: 20220401
  Receipt Date: 20220401
  Transmission Date: 20220721
  Serious: Yes (Hospitalization, Other)
  Sender: FDA-Public Use
  Company Number: CN-009507513-2203CHN008497

PATIENT
  Age: 86 Year
  Sex: Male
  Weight: 55 kg

DRUGS (15)
  1. INVANZ [Suspect]
     Active Substance: ERTAPENEM SODIUM
     Indication: Pneumonia
     Dosage: 4 GRAM, QD
     Route: 041
     Dates: start: 20220301, end: 20220305
  2. MOXIFLOXACIN HYDROCHLORIDE [Suspect]
     Active Substance: MOXIFLOXACIN HYDROCHLORIDE
     Indication: Anti-infective therapy
     Dosage: 0.4 GRAM, QD
     Route: 041
     Dates: start: 20220305, end: 20220307
  3. AMBROXOL HYDROCHLORIDE [Concomitant]
     Active Substance: AMBROXOL HYDROCHLORIDE
     Indication: Productive cough
     Dosage: 30 MILLIGRAM, BID
     Route: 041
     Dates: start: 20220301, end: 20220315
  4. ACETYLCYSTEINE [Concomitant]
     Active Substance: ACETYLCYSTEINE
     Indication: Productive cough
     Dosage: 0.3 GRAM, QD
     Route: 048
     Dates: start: 20220301, end: 20220315
  5. LEVALBUTEROL HYDROCHLORIDE [Concomitant]
     Active Substance: LEVALBUTEROL HYDROCHLORIDE
     Indication: Productive cough
     Dosage: 1.26 MILLIGRAM, QD
     Route: 048
     Dates: start: 20220301, end: 20220315
  6. MEDIUM AND LONG CHAIN FAT EMULSION [Concomitant]
     Indication: Nutritional supplementation
     Dosage: 250 MILLILITER, QD
     Route: 041
     Dates: start: 20220228, end: 20220307
  7. SODIUM POTASSIUM MAGNESIUM CALCIUM AND GLUCOSE [Concomitant]
     Indication: Nutritional supplementation
     Dosage: 500 MILLILITER, QD
     Route: 041
     Dates: start: 20220215, end: 20220315
  8. CEFOPERAZONE SODIUM SULBACTAM SODIUM [Concomitant]
     Indication: Anti-infective therapy
     Dosage: 1.5 GRAM, TID
     Route: 041
     Dates: start: 20220305, end: 20220315
  9. LINEZOLID [Concomitant]
     Active Substance: LINEZOLID
     Indication: Anti-infective therapy
     Dosage: 0.6 GRAM, BID
     Route: 041
     Dates: start: 20220305, end: 20220315
  10. AMLODIPINE;ATORVASTATIN CALCIUM [Concomitant]
     Indication: Blood pressure increased
     Dosage: 1 TABLET, QD
     Route: 048
     Dates: start: 20220228, end: 20220315
  11. ESOMEPRAZOLE SODIUM [Concomitant]
     Active Substance: ESOMEPRAZOLE SODIUM
     Indication: Hyperchlorhydria
     Dosage: 40 MILLIGRAM, QD
     Route: 048
     Dates: start: 20220228, end: 20220315
  12. COMPOUND AZINTAMIDE [Concomitant]
     Indication: Dyspepsia
     Dosage: 2 TABLETS, TID
     Route: 048
     Dates: start: 20220228, end: 20220315
  13. DOCUSATE SODIUM [Concomitant]
     Active Substance: DOCUSATE SODIUM
     Indication: Constipation
     Dosage: 100 MILLIGRAM, TID
     Route: 048
     Dates: start: 20220228, end: 20220315
  14. BACILLUS LICHENFORMIS [Concomitant]
     Indication: Dysbiosis
     Dosage: 0.5 GRAM, TID
     Route: 048
     Dates: start: 20220228, end: 20220315
  15. POTASSIUM CHLORIDE [Concomitant]
     Active Substance: POTASSIUM CHLORIDE
     Indication: Mineral supplementation
     Dosage: 1.5 GRAM, BID
     Route: 048
     Dates: start: 20220301, end: 20220315

REACTIONS (13)
  - Pulmonary cavitation [Unknown]
  - Hallucination [Unknown]
  - Delirium [Recovering/Resolving]
  - Mass [Unknown]
  - Lung opacity [Unknown]
  - Irritability [Recovering/Resolving]
  - Dysarthria [Unknown]
  - Hyponatraemia [Unknown]
  - Hypochloraemia [Unknown]
  - Neurological symptom [Unknown]
  - Dyspnoea [Unknown]
  - Dyskinesia [Unknown]
  - Overdose [Unknown]

NARRATIVE: CASE EVENT DATE: 20220301
